FAERS Safety Report 7652567-8 (Version None)
Quarter: 2011Q3

REPORT INFORMATION
  Report Type: 
  Country: None (occurrence: None)
  Receive Date: 20110801
  Receipt Date: 20110801
  Transmission Date: 20111222
  Serious: No
  Sender: FDA-Public Use
  Company Number: None

PATIENT
  Age: 53 Year
  Sex: Female
  Weight: 113.3993 kg

DRUGS (2)
  1. BONIVA [Suspect]
     Indication: OSTEOPENIA
     Dosage: ONE PILL Q MONTH PO; ONE PILL Q MONTH PO
     Route: 048
     Dates: start: 20080701, end: 20081001
  2. BONIVA [Suspect]
     Indication: OSTEOPOROSIS
     Dosage: ONE PILL Q MONTH PO; ONE PILL Q MONTH PO
     Route: 048
     Dates: start: 20080701, end: 20081001

REACTIONS (3)
  - BONE PAIN [None]
  - PAIN [None]
  - BEDRIDDEN [None]
